FAERS Safety Report 10019952 (Version 1)
Quarter: 2014Q1

REPORT INFORMATION
  Report Type: Spontaneous
  Country: DK (occurrence: FR)
  Receive Date: 20140318
  Receipt Date: 20140318
  Transmission Date: 20141002
  Serious: Yes (Hospitalization)
  Sender: FDA-Public Use
  Company Number: FR-FRI-1000064656

PATIENT
  Age: 49 Year
  Sex: Female
  Weight: 93 kg

DRUGS (12)
  1. ESCITALOPRAM [Suspect]
     Dosage: 10 MG
     Route: 048
     Dates: end: 20130709
  2. TEMESTA [Suspect]
     Dosage: 1 DF
     Route: 048
     Dates: end: 20130709
  3. LEXOMIL ROCHE [Suspect]
     Dosage: 1 DF
     Route: 048
     Dates: start: 201305, end: 20130709
  4. AVLOCARDYL [Concomitant]
     Dosage: 160 MG
     Route: 048
  5. LANTUS [Concomitant]
     Dosage: 15 IU
  6. HUMALOG [Concomitant]
     Dosage: 6 DF
  7. SECTRAL [Concomitant]
     Dosage: 400 MG
  8. ESIDREX [Concomitant]
     Dosage: 12.5 MG
     Route: 048
  9. KARDEGIC [Concomitant]
     Dosage: 75 MG
     Route: 048
  10. CREON [Concomitant]
     Dosage: 3 DF
  11. INEXIUM [Concomitant]
     Dosage: 20 MG
     Route: 048
  12. SPECIAFOLDINE [Concomitant]
     Dosage: 5 MG
     Route: 048

REACTIONS (2)
  - Depressed level of consciousness [Recovered/Resolved]
  - Hepatic encephalopathy [Recovered/Resolved]
